FAERS Safety Report 20343000 (Version 2)
Quarter: 2022Q1

REPORT INFORMATION
  Report Type: Other
  Country: US (occurrence: None)
  Receive Date: 20220117
  Receipt Date: 20220217
  Transmission Date: 20220423
  Serious: Yes (Other)
  Sender: FDA-Public Use
  Company Number: US-ROCHE-2998672

PATIENT
  Age: 38 Year
  Sex: Female

DRUGS (17)
  1. OCREVUS [Suspect]
     Active Substance: OCRELIZUMAB
     Indication: Multiple sclerosis
     Dosage: 15/JAN/2021
     Route: 042
  2. BACLOFEN [Concomitant]
     Active Substance: BACLOFEN
  3. BUDESONIDE [Concomitant]
     Active Substance: BUDESONIDE
  4. CONCERTA [Concomitant]
     Active Substance: METHYLPHENIDATE HYDROCHLORIDE
  5. VITAMIN B12 [Concomitant]
     Active Substance: CYANOCOBALAMIN
  6. DALFAMPRIDINE [Concomitant]
     Active Substance: DALFAMPRIDINE
  7. ERGOCALCIFEROL [Concomitant]
     Active Substance: ERGOCALCIFEROL
  8. FERROUS SULFATE [Concomitant]
     Active Substance: FERROUS SULFATE
  9. FLUTICASONE [Concomitant]
     Active Substance: FLUTICASONE
  10. GABAPENTIN [Concomitant]
     Active Substance: GABAPENTIN
  11. HYDROXYZINE [Concomitant]
     Active Substance: HYDROXYZINE HYDROCHLORIDE
  12. METHYLPHENIDATE [Concomitant]
     Active Substance: METHYLPHENIDATE
  13. MORPHINE [Concomitant]
     Active Substance: MORPHINE
  14. VITAMIN A [Concomitant]
     Active Substance: VITAMIN A
  15. ZINC [Concomitant]
     Active Substance: ZINC
  16. TRAZODONE [Concomitant]
     Active Substance: TRAZODONE HYDROCHLORIDE
  17. POTASSIUM CHLORIDE [Concomitant]
     Active Substance: POTASSIUM CHLORIDE

REACTIONS (2)
  - SARS-CoV-2 test positive [Recovered/Resolved]
  - Multiple sclerosis relapse [Recovered/Resolved]

NARRATIVE: CASE EVENT DATE: 20210401
